FAERS Safety Report 10363070 (Version 1)
Quarter: 2014Q3

REPORT INFORMATION
  Report Type: Spontaneous
  Country: CH (occurrence: CH)
  Receive Date: 20140805
  Receipt Date: 20140805
  Transmission Date: 20150326
  Serious: Yes (Hospitalization)
  Sender: FDA-Public Use
  Company Number: CH-PFIZER INC-2014211858

PATIENT
  Age: 78 Year
  Sex: Female
  Weight: 78.4 kg

DRUGS (4)
  1. PENTASA [Concomitant]
     Active Substance: MESALAMINE
     Dosage: 2 G, 1X/DAY
     Route: 048
  2. SORTIS [Suspect]
     Active Substance: ATORVASTATIN
     Dosage: 10 MG, 1X/DAY
     Route: 048
     Dates: end: 20140618
  3. PREDNISONE. [Concomitant]
     Active Substance: PREDNISONE
     Dosage: 20 MG, 1X/DAY
     Route: 048
  4. MUTAFLOR [Concomitant]
     Dosage: 1 DF, 1X/DAY
     Route: 048

REACTIONS (3)
  - Blood creatine phosphokinase increased [Recovering/Resolving]
  - Rhabdomyolysis [Recovering/Resolving]
  - Escherichia urinary tract infection [Unknown]

NARRATIVE: CASE EVENT DATE: 20140618
